FAERS Safety Report 9016051 (Version 1)
Quarter: 2013Q1

REPORT INFORMATION
  Report Type: Spontaneous
  Country: US (occurrence: US)
  Receive Date: 20130116
  Receipt Date: 20130116
  Transmission Date: 20140127
  Serious: No
  Sender: FDA-Public Use
  Company Number: US-009507513-1301USA005731

PATIENT
  Sex: Female

DRUGS (2)
  1. DULERA [Suspect]
     Indication: ASTHMA
     Dosage: 100/5 MICROGRAM, BID TWO PUFF EACH TIME
     Route: 055
     Dates: start: 2012
  2. VENTOLIN HFA [Concomitant]

REACTIONS (3)
  - Asthma [Recovering/Resolving]
  - Product quality issue [Unknown]
  - Drug dose omission [Unknown]
